FAERS Safety Report 20327173 (Version 1)
Quarter: 2022Q1

REPORT INFORMATION
  Report Type: Spontaneous
  Country: JP (occurrence: JP)
  Receive Date: 20220112
  Receipt Date: 20220112
  Transmission Date: 20220423
  Serious: Yes (Other)
  Sender: FDA-Public Use
  Company Number: JP-ABBVIE-22K-087-4226579-00

PATIENT
  Age: 27 Year
  Sex: Male

DRUGS (10)
  1. NORVIR [Suspect]
     Active Substance: RITONAVIR
     Indication: HIV infection
     Route: 048
     Dates: start: 20050720, end: 20110607
  2. NORVIR [Suspect]
     Active Substance: RITONAVIR
     Route: 048
     Dates: start: 20110608, end: 20141025
  3. TENOFOVIR DISOPROXIL FUMARATE [Suspect]
     Active Substance: TENOFOVIR DISOPROXIL FUMARATE
     Indication: HIV infection
     Route: 048
     Dates: start: 20050720, end: 20170531
  4. EMTRICITABINE\TENOFOVIR DISOPROXIL FUMARATE [Suspect]
     Active Substance: EMTRICITABINE\TENOFOVIR DISOPROXIL FUMARATE
     Indication: HIV infection
     Dosage: 1 DOSAGE FORM
     Route: 048
     Dates: start: 20050914, end: 20170531
  5. VIRACEPT [Suspect]
     Active Substance: NELFINAVIR MESYLATE
     Indication: HIV infection
     Route: 048
     Dates: start: 19980427, end: 20010705
  6. VIRACEPT [Suspect]
     Active Substance: NELFINAVIR MESYLATE
     Route: 048
     Dates: start: 20010706, end: 20090719
  7. EPIVIR [Suspect]
     Active Substance: LAMIVUDINE
     Indication: HIV infection
     Route: 048
     Dates: start: 19980427, end: 20050913
  8. ZERIT [Suspect]
     Active Substance: STAVUDINE
     Indication: HIV infection
     Route: 048
     Dates: start: 19980427, end: 20050719
  9. REYATAZ [Suspect]
     Active Substance: ATAZANAVIR SULFATE
     Indication: HIV infection
     Route: 048
     Dates: start: 20050720, end: 20120508
  10. TIVICAY [Suspect]
     Active Substance: DOLUTEGRAVIR SODIUM
     Indication: HIV infection
     Route: 048
     Dates: start: 20141026, end: 20190819

REACTIONS (4)
  - Hypertriglyceridaemia [Not Recovered/Not Resolved]
  - Folliculitis [Recovered/Resolved]
  - Hepatic function abnormal [Recovering/Resolving]
  - Hyperbilirubinaemia [Not Recovered/Not Resolved]

NARRATIVE: CASE EVENT DATE: 20050901
